FAERS Safety Report 6219723-7 (Version None)
Quarter: 2009Q2

REPORT INFORMATION
  Report Type: 
  Country: None (occurrence: None)
  Receive Date: 20090605
  Receipt Date: 20090521
  Transmission Date: 20091009
  Serious: Yes (Other)
  Sender: FDA-Public Use
  Company Number: 8023570

PATIENT
  Age: 49 Year
  Sex: Female
  Weight: 100 kg

DRUGS (9)
  1. CDP870 [Suspect]
     Indication: RHEUMATOID ARTHRITIS
     Dosage: 200 MG 1/2W SC
     Route: 058
     Dates: start: 20050523, end: 20050829
  2. CDP870 [Suspect]
     Indication: RHEUMATOID ARTHRITIS
     Dosage: 400 MG 1/2W SC
     Route: 058
     Dates: start: 20050912, end: 20070423
  3. CDP870 [Suspect]
     Indication: RHEUMATOID ARTHRITIS
     Dosage: 400 MG 1/2W SC
     Route: 058
     Dates: start: 20070508
  4. CDP870 [Suspect]
     Indication: RHEUMATOID ARTHRITIS
     Dosage: 400 MG 1/2W SC
     Route: 058
     Dates: start: 20080128
  5. METHYLPREDNISOLONE [Concomitant]
  6. MELOXICAM [Concomitant]
  7. METHOTREXATE [Concomitant]
  8. ACID FOLIC [Concomitant]
  9. LISINOPRIL [Concomitant]

REACTIONS (10)
  - ACUTE SINUSITIS [None]
  - BRONCHITIS CHRONIC [None]
  - CHRONIC SINUSITIS [None]
  - CONDITION AGGRAVATED [None]
  - HYPERTENSION [None]
  - LARYNGITIS [None]
  - PHARYNGITIS [None]
  - RHINITIS [None]
  - URINARY TRACT INFECTION [None]
  - UTERINE LEIOMYOMA [None]
